FAERS Safety Report 5885955-0 (Version None)
Quarter: 2008Q3

REPORT INFORMATION
  Report Type: 
  Country: None (occurrence: None)
  Receive Date: 20080917
  Receipt Date: 20080909
  Transmission Date: 20090109
  Serious: Yes (Hospitalization)
  Sender: FDA-Public Use
  Company Number: US-KINGPHARMUSA00001-K200801053

PATIENT

DRUGS (6)
  1. ALTACE [Suspect]
     Dosage: 2.5 MG, QD
     Route: 048
     Dates: start: 20060101, end: 20080324
  2. ASPIRIN [Suspect]
     Dosage: 100 MG, QD
     Route: 048
     Dates: start: 20060101, end: 20080324
  3. SIMVAGAMMA [Suspect]
     Dosage: 20 MG, QD
     Route: 048
     Dates: start: 20050101, end: 20080324
  4. APONAL [Suspect]
     Indication: DEPRESSION
     Dosage: 50 MG, QD
     Route: 048
     Dates: start: 20060101, end: 20080325
  5. CALCIUM WITH VITAMIN D             /00944201/ [Concomitant]
     Indication: OSTEOPOROSIS
     Dosage: 2.5 MG, QD
     Route: 048
     Dates: start: 20071101, end: 20080324
  6. OCULOTECT                          /00042801/ [Concomitant]
     Dosage: 4 DF, UNK
     Dates: start: 19900101, end: 20080325

REACTIONS (1)
  - AUTOIMMUNE THROMBOCYTOPENIA [None]
